FAERS Safety Report 4626630-X (Version None)
Quarter: 2005Q1

REPORT INFORMATION
  Report Type: 
  Country: None (occurrence: None)
  Receive Date: 20050330
  Receipt Date: 20050318
  Transmission Date: 20050727
  Serious: Yes (Death)
  Sender: FDA-Public Use
  Company Number: 200510939BCC

PATIENT
  Age: 67 Year
  Sex: Female

DRUGS (1)
  1. CAMPHO-PHENIQUE LIQUID [Suspect]
     Indication: TOOTHACHE
     Dosage: PRN, TOPICAL
     Route: 061

REACTIONS (2)
  - PHARMACEUTICAL PRODUCT COMPLAINT [None]
  - PULMONARY OEDEMA [None]
